FAERS Safety Report 22060954 (Version 1)
Quarter: 2023Q1

REPORT INFORMATION
  Report Type: Spontaneous
  Country: CN (occurrence: CN)
  Receive Date: 20230303
  Receipt Date: 20230303
  Transmission Date: 20230418
  Serious: Yes (Hospitalization, Other)
  Sender: FDA-Public Use
  Company Number: CN-PFIZER INC-PV202300040266

PATIENT
  Age: 73 Year
  Sex: Female
  Weight: 60 kg

DRUGS (1)
  1. CYTARABINE [Suspect]
     Active Substance: CYTARABINE
     Indication: Acute leukaemia
     Dosage: 3 G, 2X/DAY
     Dates: start: 20230202, end: 20230204

REACTIONS (6)
  - Myelosuppression [Recovering/Resolving]
  - Haematochezia [Unknown]
  - Mouth haemorrhage [Recovering/Resolving]
  - Gingival bleeding [Unknown]
  - Chromaturia [Unknown]
  - Anaemia [Recovering/Resolving]

NARRATIVE: CASE EVENT DATE: 20230205
